FAERS Safety Report 8517622-9 (Version None)
Quarter: 2012Q3

REPORT INFORMATION
  Report Type: 
  Country: None (occurrence: None)
  Receive Date: 20120718
  Receipt Date: 20120516
  Transmission Date: 20120928
  Serious: Yes (Other)
  Sender: FDA-Public Use
  Company Number: KR-ROCHE-1069906

PATIENT

DRUGS (6)
  1. PACLITAXEL [Suspect]
     Indication: BREAST CANCER
  2. PACLITAXEL [Suspect]
     Dosage: DOSAGES WERE MODIFIED TO ONE STEP LOWER THAN THE PREVIOUS LEVEL AFTER WITHHOLDING TREATMENT
  3. GEMCITABINE HYDROCHLORIDE [Suspect]
     Indication: BREAST CANCER
  4. HERCEPTIN [Suspect]
     Indication: BREAST CANCER
     Dosage: OVER 90 MIN ON DAY 1, FOLLOWED BY 2 MG/KG OVER 30 MIN WEEKLY, FOR A TOTAL OF 18 DOSES
     Route: 042
  5. HERCEPTIN [Suspect]
     Dosage: AFTER CURATIVE SURGERY UNTIL 52 WEEKS OF THERAPY WAS COMPLETED.
     Route: 042
  6. GEMCITABINE HYDROCHLORIDE [Suspect]
     Dosage: DOSAGES WERE MODIFIED TO ONE STEP LOWER THAN THE PREVIOUS LEVEL AFTER WITHHOLDING TREATMENT

REACTIONS (9)
  - FATIGUE [None]
  - NEUTROPENIA [None]
  - THROMBOCYTOPENIA [None]
  - DECREASED APPETITE [None]
  - LEUKOPENIA [None]
  - ASPARTATE AMINOTRANSFERASE INCREASED [None]
  - ALANINE AMINOTRANSFERASE INCREASED [None]
  - STOMATITIS [None]
  - FEBRILE NEUTROPENIA [None]
